FAERS Safety Report 6780768-X (Version None)
Quarter: 2010Q2

REPORT INFORMATION
  Report Type: 
  Country: None (occurrence: None)
  Receive Date: 20100621
  Receipt Date: 20100617
  Transmission Date: 20101027
  Serious: Yes (Other)
  Sender: FDA-Public Use
  Company Number: US-ASTRAZENECA-2010SE28369

PATIENT
  Age: 263 Month
  Sex: Male
  Weight: 95.3 kg

DRUGS (3)
  1. SEROQUEL [Suspect]
     Indication: INSOMNIA
     Route: 048
     Dates: start: 20060601, end: 20060901
  2. SEROQUEL [Suspect]
     Indication: DEPRESSION
     Route: 048
     Dates: start: 20060601, end: 20060901
  3. METHADONE [Concomitant]
     Dates: start: 20091101

REACTIONS (4)
  - NEUROPATHY PERIPHERAL [None]
  - RENAL FAILURE [None]
  - TYPE 2 DIABETES MELLITUS [None]
  - WEIGHT INCREASED [None]
